FAERS Safety Report 7508403-3 (Version None)
Quarter: 2011Q2

REPORT INFORMATION
  Report Type: 
  Country: None (occurrence: None)
  Receive Date: 20110527
  Receipt Date: 20110513
  Transmission Date: 20111010
  Serious: Yes (Hospitalization, Other)
  Sender: FDA-Public Use
  Company Number: PL-CELGENEUS-129-21880-11040888

PATIENT
  Sex: Female

DRUGS (8)
  1. DEXAMETHASONE [Concomitant]
     Indication: MULTIPLE MYELOMA
     Route: 065
     Dates: start: 20090501
  2. REVLIMID [Suspect]
     Dosage: 10 MILLIGRAM
     Route: 048
     Dates: end: 20110301
  3. TRAMADOL HCL [Concomitant]
     Route: 065
  4. BISPHOSPHONATES [Concomitant]
     Route: 065
  5. REVLIMID [Suspect]
     Dosage: 15 MILLIGRAM
     Route: 048
  6. P/BOLONE [Concomitant]
     Route: 065
  7. REVLIMID [Suspect]
     Indication: MULTIPLE MYELOMA
     Dosage: 25 MILLIGRAM
     Route: 048
     Dates: start: 20090501
  8. PROPRANOLOL [Concomitant]
     Route: 065

REACTIONS (1)
  - GASTRIC CANCER [None]
